FAERS Safety Report 4545848-8 (Version None)
Quarter: 2005Q1

REPORT INFORMATION
  Report Type: 
  Country: None (occurrence: None)
  Receive Date: 20050105
  Receipt Date: 20050105
  Transmission Date: 20050727
  Serious: Yes (Life-Threatening, Hospitalization)
  Sender: FDA-Public Use
  Company Number: None

PATIENT
  Age: 56 Year
  Sex: Male
  Weight: 99 kg

DRUGS (9)
  1. CYTOKINE INDUCED KILLER CELLS DERIVED FROM PBMC (BB IND 11483) [Suspect]
     Indication: BLOOD DISORDER
     Dosage: 5X10 7 CELLS/KG  IV
     Route: 042
     Dates: start: 20041229
  2. VALIUM [Concomitant]
  3. NEURONTIN [Concomitant]
  4. DECADRON [Concomitant]
  5. OXYCONTIN [Concomitant]
  6. CELEXA [Concomitant]
  7. FENTANYL [Concomitant]
  8. CALCIUM AND POTTASIUM SUPPLEMENTS [Concomitant]
  9. ZOMETA [Concomitant]

REACTIONS (5)
  - ARRHYTHMIA [None]
  - BRADYCARDIA [None]
  - DYSPNOEA [None]
  - HYPOTENSION [None]
  - VENTRICULAR EXTRASYSTOLES [None]
